FAERS Safety Report 8596143-1 (Version None)
Quarter: 2012Q3

REPORT INFORMATION
  Report Type: 
  Country: None (occurrence: None)
  Receive Date: 20120801
  Receipt Date: 20120718
  Transmission Date: 20120928
  Serious: Yes (Other)
  Sender: FDA-Public Use
  Company Number: JP-2012-15713

PATIENT
  Age: 56 Year
  Sex: Male
  Weight: 56 kg

DRUGS (8)
  1. SAMSCA [Suspect]
     Indication: FLUID RETENTION
     Dosage: 3.75 MG MILLIGRAM(S), QAM, ORAL
     Route: 048
     Dates: start: 20120615, end: 20120627
  2. ASPIRIN [Suspect]
     Indication: PROPHYLAXIS
     Dosage: 100 MG MILLIGRAM(S), DAILY DOSE, ORAL
     Route: 048
  3. SELARA (EPLERNONE) [Concomitant]
  4. WARFARIN SODIUM [Suspect]
     Indication: PROPHYLAXIS
     Dosage: 3 MG MILLIGRAM(S), DAILY DOSE, ORAL
     Route: 048
  5. TANATRIL (IMIDAPRIL HYDROCHLORIDE) [Concomitant]
  6. CARVEDILOL [Concomitant]
  7. LASIX [Concomitant]
  8. AMIODARONE HCL [Concomitant]

REACTIONS (4)
  - BLOOD UREA INCREASED [None]
  - CEREBRAL HAEMORRHAGE [None]
  - RESTLESSNESS [None]
  - ABNORMAL BEHAVIOUR [None]
